FAERS Safety Report 5141979-2 (Version None)
Quarter: 2006Q4

REPORT INFORMATION
  Report Type: 
  Country: None (occurrence: None)
  Receive Date: 20061102
  Receipt Date: 20061025
  Transmission Date: 20070319
  Serious: Yes (Death)
  Sender: FDA-Public Use
  Company Number: MW-BOEHRINGER INGELHEIM PHARMACEUTICALS, INC.-2006-DE-05655GD

PATIENT

DRUGS (2)
  1. VIRAMUNE [Suspect]
     Indication: HUMAN IMMUNODEFICIENCY VIRUS TRANSMISSION
     Route: 015
  2. VIRAMUNE [Suspect]
     Indication: PROPHYLAXIS

REACTIONS (5)
  - DEATH [None]
  - DRUG EXPOSURE DURING PREGNANCY [None]
  - HIV INFECTION [None]
  - HUMAN IMMUNODEFICIENCY VIRUS TRANSMISSION [None]
  - STILLBIRTH [None]
